FAERS Safety Report 5822534-5 (Version None)
Quarter: 2008Q3

REPORT INFORMATION
  Report Type: 
  Country: None (occurrence: None)
  Receive Date: 20080725
  Receipt Date: 20080716
  Transmission Date: 20090109
  Serious: Yes (Life-Threatening, Hospitalization)
  Sender: FDA-Public Use
  Company Number: PK-AVENTIS-200816746GDDC

PATIENT
  Age: 60 Hour
  Sex: Male
  Weight: 2.8 kg

DRUGS (1)
  1. CLAFORAN [Suspect]
     Indication: SEPSIS
     Dosage: DOSE: 125MG BD
     Route: 042
     Dates: start: 20080710, end: 20080710

REACTIONS (2)
  - CARDIAC ARREST [None]
  - WRONG TECHNIQUE IN DRUG USAGE PROCESS [None]
